FAERS Safety Report 7686070-6 (Version None)
Quarter: 2011Q3

REPORT INFORMATION
  Report Type: 
  Country: None (occurrence: None)
  Receive Date: 20110816
  Receipt Date: 20110810
  Transmission Date: 20111222
  Serious: No
  Sender: FDA-Public Use
  Company Number: US-PFIZER INC-US-WYE-H16301710

PATIENT
  Sex: Male

DRUGS (1)
  1. RAPAMUNE [Suspect]
     Indication: TRANSPLANT
     Dosage: UNK
     Route: 048

REACTIONS (2)
  - DRUG LEVEL DECREASED [None]
  - INCORRECT STORAGE OF DRUG [None]
